FAERS Safety Report 5104859-4 (Version None)
Quarter: 2006Q3

REPORT INFORMATION
  Report Type: 
  Country: None (occurrence: None)
  Receive Date: 20060911
  Receipt Date: 20060830
  Transmission Date: 20061208
  Serious: Yes (Other)
  Sender: FDA-Public Use
  Company Number: 2006106088

PATIENT
  Age: 47 Year
  Sex: Male

DRUGS (1)
  1. GEODON [Suspect]
     Indication: DRUG USE FOR UNKNOWN INDICATION
     Dosage: 80 MG (40 MG, 2 IN 1 D),

REACTIONS (5)
  - EXTRAPYRAMIDAL DISORDER [None]
  - INNER EAR DISORDER [None]
  - MUSCLE RIGIDITY [None]
  - MUSCLE TWITCHING [None]
  - MYALGIA [None]
